FAERS Safety Report 5685238-8 (Version None)
Quarter: 2008Q1

REPORT INFORMATION
  Report Type: 
  Country: None (occurrence: None)
  Receive Date: 20080328
  Receipt Date: 20080317
  Transmission Date: 20080703
  Serious: Yes (Other)
  Sender: FDA-Public Use
  Company Number: US-PFIZER INC-2008007184

PATIENT
  Sex: Male
  Weight: 117.27 kg

DRUGS (4)
  1. ZITHROMAX [Suspect]
     Indication: SINUSITIS
  2. CHANTIX [Suspect]
     Indication: EX-SMOKER
  3. ANTIBIOTICS [Suspect]
     Indication: SINUSITIS
  4. WARFARIN SODIUM [Concomitant]

REACTIONS (4)
  - BLOOD DISORDER [None]
  - BLOOD VISCOSITY INCREASED [None]
  - INTERNATIONAL NORMALISED RATIO DECREASED [None]
  - PLASMA VISCOSITY DECREASED [None]
